FAERS Safety Report 20229025 (Version 1)
Quarter: 2021Q4

REPORT INFORMATION
  Report Type: Spontaneous
  Country: DE (occurrence: DE)
  Receive Date: 20211225
  Receipt Date: 20211225
  Transmission Date: 20220303
  Serious: Yes (Other)
  Sender: FDA-Public Use
  Company Number: DE-NOVARTISPH-NVSC2021DE289878

PATIENT
  Age: 67 Year
  Sex: Male

DRUGS (1)
  1. COSENTYX [Suspect]
     Active Substance: SECUKINUMAB
     Indication: Psoriasis
     Dosage: 300 MG, QMO
     Route: 058
     Dates: start: 201507, end: 20211213

REACTIONS (4)
  - Inflammatory bowel disease [Unknown]
  - Diarrhoea haemorrhagic [Unknown]
  - Proctitis [Unknown]
  - Colitis [Unknown]

NARRATIVE: CASE EVENT DATE: 20211101
